FAERS Safety Report 19001231 (Version 1)
Quarter: 2021Q1

REPORT INFORMATION
  Report Type: Spontaneous
  Country: CN (occurrence: CN)
  Receive Date: 20210312
  Receipt Date: 20210312
  Transmission Date: 20210420
  Serious: Yes (Other)
  Sender: FDA-Public Use
  Company Number: CN-B.I. PHARMACEUTICALS,INC./RIDGEFIELD-2021-BI-088214

PATIENT
  Age: 61 Year
  Sex: Female
  Weight: 60 kg

DRUGS (3)
  1. SIFROL [Suspect]
     Active Substance: PRAMIPEXOLE
     Indication: PARKINSON^S DISEASE
     Route: 048
     Dates: start: 20200501, end: 20210223
  2. AMANTADINE [AMANTADINE HYDROCHLORIDE] [Concomitant]
     Indication: PARKINSON^S DISEASE
     Route: 048
     Dates: start: 20200501, end: 20210223
  3. BENSERAZIDE;LEVODOPA [Concomitant]
     Active Substance: BENSERAZIDE\LEVODOPA
     Indication: PARKINSON^S DISEASE
     Dosage: 0.5 DOSAGE FORM 1 IN 8 HOURS.
     Route: 048
     Dates: start: 20200501, end: 20210223

REACTIONS (3)
  - Urinary tract infection [Unknown]
  - Vision blurred [Unknown]
  - Eyelid oedema [Unknown]

NARRATIVE: CASE EVENT DATE: 20210123
